FAERS Safety Report 9311123 (Version 2)
Quarter: 2013Q3

REPORT INFORMATION
  Report Type: Spontaneous
  Country: AT (occurrence: AT)
  Receive Date: 20130528
  Receipt Date: 20130717
  Transmission Date: 20140515
  Serious: Yes (Death)
  Sender: FDA-Public Use
  Company Number: AT-JNJFOC-20130515495

PATIENT
  Sex: Male

DRUGS (1)
  1. REMICADE [Suspect]
     Indication: PRODUCT USED FOR UNKNOWN INDICATION
     Route: 042

REACTIONS (1)
  - Death [Fatal]
